FAERS Safety Report 18238343 (Version 4)
Quarter: 2020Q4

REPORT INFORMATION
  Report Type: Spontaneous
  Country: US (occurrence: US)
  Receive Date: 20200907
  Receipt Date: 20201012
  Transmission Date: 20210113
  Serious: No
  Sender: FDA-Public Use
  Company Number: US-PFIZER INC-2020343483

PATIENT
  Age: 64 Year
  Sex: Male
  Weight: 100.24 kg

DRUGS (3)
  1. TOVIAZ [Suspect]
     Active Substance: FESOTERODINE FUMARATE
     Indication: POLLAKIURIA
     Dosage: 4 MG, 1X/DAY (FOR 8 MONTHS)
     Route: 048
     Dates: start: 2010
  2. TOVIAZ [Suspect]
     Active Substance: FESOTERODINE FUMARATE
     Dosage: 8 MG, 1X/DAY (TWO 4MG TABLETS, BY MOUTH, NIGHTLY)
     Route: 048
  3. TOVIAZ [Suspect]
     Active Substance: FESOTERODINE FUMARATE
     Dosage: 8 MG, 1X/DAY(TAKE ONE 8MG TABLET NIGHTLY)

REACTIONS (3)
  - Dry mouth [Not Recovered/Not Resolved]
  - Therapeutic product effect incomplete [Unknown]
  - Dental caries [Not Recovered/Not Resolved]

NARRATIVE: CASE EVENT DATE: 2010
